FAERS Safety Report 4687417-5 (Version None)
Quarter: 2005Q2

REPORT INFORMATION
  Report Type: 
  Country: None (occurrence: None)
  Receive Date: 20050609
  Receipt Date: 20050609
  Transmission Date: 20051028
  Serious: No
  Sender: FDA-Public Use
  Company Number: None

PATIENT
  Age: 38 Year
  Sex: Female

DRUGS (4)
  1. DOCETAXEL [Suspect]
     Indication: BREAST CANCER
     Dosage: 132 MG IIV EVERY 2 WEEKS FOR 4 CYCLES
     Route: 042
     Dates: start: 20050426, end: 20050513
  2. ACETAMINOPHEN [Concomitant]
  3. OXYCODONE HCL [Concomitant]
  4. PERCOCET [Concomitant]

REACTIONS (2)
  - ABDOMINAL PAIN LOWER [None]
  - BACK PAIN [None]
